FAERS Safety Report 7769002-1 (Version None)
Quarter: 2011Q3

REPORT INFORMATION
  Report Type: 
  Country: None (occurrence: None)
  Receive Date: 20110922
  Receipt Date: 20100915
  Transmission Date: 20111222
  Serious: No
  Sender: FDA-Public Use
  Company Number: US-ASTRAZENECA-2010SE43344

PATIENT
  Age: 47 Year
  Sex: Female
  Weight: 46.7 kg

DRUGS (2)
  1. SEROQUEL XR [Suspect]
     Indication: NIGHTMARE
     Route: 048
     Dates: start: 20090101, end: 20100701
  2. SEROQUEL XR [Suspect]
     Indication: INSOMNIA
     Route: 048
     Dates: start: 20090101, end: 20100701

REACTIONS (5)
  - OBSESSIVE-COMPULSIVE DISORDER [None]
  - MANIA [None]
  - DRUG DOSE OMISSION [None]
  - INSOMNIA [None]
  - THINKING ABNORMAL [None]
